FAERS Safety Report 4457062-5 (Version None)
Quarter: 2004Q3

REPORT INFORMATION
  Report Type: 
  Country: None (occurrence: None)
  Receive Date: 20040830
  Receipt Date: 20040408
  Transmission Date: 20050211
  Serious: No
  Sender: FDA-Public Use
  Company Number: 205831

PATIENT
  Age: 52 Year
  Sex: Male
  Weight: 101.6 kg

DRUGS (5)
  1. XOLAIR [Suspect]
     Indication: ASTHMA
     Dosage: 375 MG, Q2W, SUBCUTANEOUS
     Route: 058
     Dates: start: 20040309
  2. XOPENEX [Concomitant]
  3. PULMICORT [Concomitant]
  4. COMBIVENT (ALBUTEROL SULFATE, ALBUTEROL, IPRATROPIUM BROMIDE) [Concomitant]
  5. QVAR (BECLOMETHASONE DIPROPIONATE) [Concomitant]

REACTIONS (1)
  - ABNORMAL SENSATION IN EYE [None]
